FAERS Safety Report 9753135 (Version 1)
Quarter: 2013Q4

REPORT INFORMATION
  Report Type: Spontaneous
  Country: US (occurrence: US)
  Receive Date: 20131213
  Receipt Date: 20131213
  Transmission Date: 20140711
  Serious: No
  Sender: FDA-Public Use
  Company Number: US-GILEAD-2010-0026411

PATIENT
  Sex: Male
  Weight: 78.02 kg

DRUGS (26)
  1. LETAIRIS [Suspect]
     Indication: PULMONARY ARTERIAL HYPERTENSION
     Route: 048
     Dates: start: 20091022
  2. ASTEPRO 0.15% [Concomitant]
  3. OXYGEN [Concomitant]
  4. CLORAZEPATE [Concomitant]
  5. BACTRIM [Concomitant]
  6. ASTELIN [Concomitant]
  7. LASIX [Concomitant]
  8. NYSTATIN [Concomitant]
  9. SYNTHROID [Concomitant]
  10. PREDNISONE [Concomitant]
  11. AFRIN [Concomitant]
  12. LOTRISON [Concomitant]
  13. METOLAZONE [Concomitant]
  14. ALLERCLEAR [Concomitant]
  15. TESTOSTERONE [Concomitant]
  16. DIFLORASONE 0.05% [Concomitant]
  17. PRILOSEC DR [Concomitant]
  18. A-Z MULTIVITAMIN [Concomitant]
  19. ASCORBIC ACID [Concomitant]
  20. CALCIUM-MAGNESIUM [Concomitant]
  21. HYDROCORTISONE 0.5% [Concomitant]
  22. VITAMIN D-3 [Concomitant]
  23. POTASSIUM CHLORIDE [Concomitant]
  24. SALINE NASAL SPRAY [Concomitant]
  25. ADULT ASPIRIN [Concomitant]
  26. VITAMIN B-12 [Concomitant]

REACTIONS (1)
  - Rash [Unknown]
